FAERS Safety Report 15397090 (Version 1)
Quarter: 2018Q3

REPORT INFORMATION
  Report Type: Other
  Country: US (occurrence: US)
  Receive Date: 20180918
  Receipt Date: 20180918
  Transmission Date: 20181010
  Serious: No
  Sender: FDA-Public Use
  Company Number: US-LEADIANT BIOSCIENCES INC-2018STPI000330

PATIENT
  Sex: Male

DRUGS (11)
  1. VITAMIN D                          /00107901/ [Concomitant]
     Active Substance: ERGOCALCIFEROL
  2. AMIODARONE [Concomitant]
     Active Substance: AMIODARONE
  3. CLOPIDOGREL [Concomitant]
     Active Substance: CLOPIDOGREL BISULFATE
  4. DIGOXIN. [Concomitant]
     Active Substance: DIGOXIN
  5. SAVAYSA [Concomitant]
     Active Substance: EDOXABAN TOSYLATE
  6. SPIRIVA [Concomitant]
     Active Substance: TIOTROPIUM BROMIDE MONOHYDRATE
  7. ATORVASTATIN [Concomitant]
     Active Substance: ATORVASTATIN
  8. MATULANE [Suspect]
     Active Substance: PROCARBAZINE HYDROCHLORIDE
     Indication: NON-HODGKIN^S LYMPHOMA
     Dosage: 100 MG, 2 CAPSULES DAILY ON DAYS 1 TO 14 EVERY 28 DAYS FOR 6 CYCLES
     Dates: start: 20180223
  9. ST. JOHN^S WORT [Concomitant]
     Active Substance: ST. JOHN^S WORT
  10. SYMBICORT [Concomitant]
     Active Substance: BUDESONIDE\FORMOTEROL FUMARATE DIHYDRATE
  11. ALLOPURINOL. [Concomitant]
     Active Substance: ALLOPURINOL

REACTIONS (1)
  - Somnolence [Not Recovered/Not Resolved]
